FAERS Safety Report 15993352 (Version 2)
Quarter: 2019Q1

REPORT INFORMATION
  Report Type: Spontaneous
  Country: US (occurrence: US)
  Receive Date: 20190222
  Receipt Date: 20190306
  Transmission Date: 20190418
  Serious: Yes (Death, Other)
  Sender: FDA-Public Use
  Company Number: PHEH2019US007880

PATIENT
  Sex: Male

DRUGS (1)
  1. TASIGNA [Suspect]
     Active Substance: NILOTINIB
     Indication: CHRONIC MYELOID LEUKAEMIA
     Dosage: 1 DF, QD
     Route: 048

REACTIONS (27)
  - Death [Fatal]
  - Cholecystitis acute [Unknown]
  - Asthenia [Unknown]
  - Delirium [Unknown]
  - Sepsis [Unknown]
  - Wound [Unknown]
  - Pain [Unknown]
  - Intermittent claudication [Unknown]
  - Coronary artery disease [Unknown]
  - Hypercholesterolaemia [Unknown]
  - Abdominal pain [Unknown]
  - Small intestinal obstruction [Unknown]
  - Obstruction gastric [Unknown]
  - Cardiac failure congestive [Unknown]
  - Abdominal distension [Unknown]
  - Peripheral vascular disorder [Unknown]
  - Ulcer [Unknown]
  - Dyspnoea [Unknown]
  - Osteomyelitis [Unknown]
  - Urinary tract infection [Unknown]
  - Anxiety [Unknown]
  - Renal failure [Unknown]
  - Carotid artery stenosis [Unknown]
  - Asbestosis [Unknown]
  - Peripheral arterial occlusive disease [Unknown]
  - Bronchitis [Unknown]
  - Neuropathy peripheral [Unknown]
